FAERS Safety Report 6770885-2 (Version None)
Quarter: 2010Q2

REPORT INFORMATION
  Report Type: 
  Country: None (occurrence: None)
  Receive Date: 20100615
  Receipt Date: 20100607
  Transmission Date: 20101027
  Serious: Yes (Hospitalization, Other)
  Sender: FDA-Public Use
  Company Number: US-AMGEN-QUU397290

PATIENT
  Sex: Female

DRUGS (2)
  1. NPLATE [Suspect]
     Indication: IDIOPATHIC THROMBOCYTOPENIC PURPURA
     Dates: start: 20090618, end: 20091209
  2. CORTICOSTEROIDS [Concomitant]
     Dates: start: 20080715

REACTIONS (2)
  - AORTIC STENOSIS [None]
  - CARDIAC FAILURE CONGESTIVE [None]
